FAERS Safety Report 5711364-0 (Version None)
Quarter: 2008Q2

REPORT INFORMATION
  Report Type: 
  Country: None (occurrence: None)
  Receive Date: 20080421
  Receipt Date: 20080414
  Transmission Date: 20081010
  Serious: Yes (Hospitalization)
  Sender: FDA-Public Use
  Company Number: B0517252A

PATIENT
  Sex: Male

DRUGS (1)
  1. TRANYLCYPROMINE SULFATE [Suspect]
     Dosage: 40MG PER DAY
     Route: 048

REACTIONS (10)
  - ALANINE AMINOTRANSFERASE INCREASED [None]
  - ASPARTATE AMINOTRANSFERASE INCREASED [None]
  - BLOOD CREATINE PHOSPHOKINASE INCREASED [None]
  - CIRCULATORY COLLAPSE [None]
  - DELIRIUM [None]
  - DRUG DEPENDENCE [None]
  - HALLUCINATION [None]
  - THROMBOCYTHAEMIA [None]
  - THROMBOCYTOPENIA [None]
  - WITHDRAWAL SYNDROME [None]
